FAERS Safety Report 11083938 (Version 3)
Quarter: 2015Q2

REPORT INFORMATION
  Report Type: Spontaneous
  Country: US (occurrence: US)
  Receive Date: 20150501
  Receipt Date: 20150601
  Transmission Date: 20150821
  Serious: Yes (Death, Hospitalization)
  Sender: FDA-Public Use
  Company Number: US-PFIZER INC-2015089264

PATIENT
  Age: 73 Year
  Sex: Female

DRUGS (20)
  1. ROXICODONE [Concomitant]
     Active Substance: OXYCODONE HYDROCHLORIDE
     Indication: PAIN
     Dosage: 10 MG, AS NEEDED (EVERY 4 HOURS AS NEEDED)
     Route: 048
  2. ATIVAN [Concomitant]
     Active Substance: LORAZEPAM
     Indication: SLEEP DISORDER
  3. OXYCODONE [Concomitant]
     Active Substance: OXYCODONE
     Dosage: 60 MG, 2X/DAY (EVERY 12 H)
     Route: 048
  4. LEXAPRO [Concomitant]
     Active Substance: ESCITALOPRAM OXALATE
     Dosage: 20 MG, DAILY
     Route: 048
  5. OMEGA [Concomitant]
     Active Substance: CONVALLARIA MAJALIS\CRATAEGUS LAEVIGATA LEAF\PROXYPHYLLINE
     Dosage: 31000 MG, UNK
     Route: 048
  6. ZOFRAN -OTD [Concomitant]
     Indication: NAUSEA
     Dosage: 4 MG, AS NEEDED (3 TIMES DAILY AS NEEDED)
     Route: 048
  7. DELTASONE [Concomitant]
     Active Substance: PREDNISONE
     Dosage: 5 MG, DAILY
     Route: 048
  8. REMERON [Concomitant]
     Active Substance: MIRTAZAPINE
     Dosage: 45 MG, DAILY NIGHTLY
     Route: 048
  9. LANOXIN [Concomitant]
     Active Substance: DIGOXIN
     Dosage: 250 ?G, DAILY
     Route: 048
  10. LOPRESSOR [Concomitant]
     Active Substance: METOPROLOL TARTRATE
     Dosage: 75 MG, DAILY
     Route: 048
  11. GLYCOLAX [Concomitant]
     Active Substance: POLYETHYLENE GLYCOL 3350
     Dosage: 17 G, DAILY (17 G BY MOUTH DAILY MIX IN 8 OZ WATER OR JUICE AND DRINK)
     Route: 048
  12. PHENERGAN [Concomitant]
     Active Substance: PROMETHAZINE HYDROCHLORIDE
     Indication: NAUSEA
     Dosage: 12.5 MG, AS NEEDED (EVERY 6 HOURS AS NEEDED)
  13. FRAGMIN [Concomitant]
     Active Substance: DALTEPARIN SODIUM
     Dosage: DAILY (INJECT 0.2 MLS (5,000 UNITS TOTAL) INTO THE SKIN DAILY)
  14. LEVOTHYROXINE [Concomitant]
     Active Substance: LEVOTHYROXINE
     Dosage: 150 ?G, UNK
  15. ATIVAN [Concomitant]
     Active Substance: LORAZEPAM
     Indication: ANXIETY
     Dosage: 0.5 MG, AS NEEDED (2 TIMES DAILY)
     Route: 048
  16. IMODIUM [Concomitant]
     Active Substance: LOPERAMIDE HYDROCHLORIDE
     Indication: DIARRHOEA
     Dosage: 2 MG, AS NEEDED (3 TIMES DAILY)
  17. INLYTA [Suspect]
     Active Substance: AXITINIB
     Indication: METASTATIC RENAL CELL CARCINOMA
     Dosage: 3 MG, 2X/DAY
     Dates: start: 201403
  18. METAMUCIL [Concomitant]
     Active Substance: PLANTAGO SEED
     Indication: CONSTIPATION
     Dosage: 0.52 G, AS NEEDED ( DAILY AS NEEDED)
     Route: 048
  19. COLACE [Concomitant]
     Active Substance: DOCUSATE SODIUM
     Indication: CONSTIPATION
     Dosage: 100 MG, AS NEEDED (DAILY AS NEEDED)
  20. DEMADEX [Concomitant]
     Active Substance: TORSEMIDE
     Dosage: 20 MG, DAILY
     Route: 048

REACTIONS (19)
  - Anxiety [Not Recovered/Not Resolved]
  - Fatigue [Not Recovered/Not Resolved]
  - Disease progression [Fatal]
  - Post herpetic neuralgia [Not Recovered/Not Resolved]
  - Insomnia [Not Recovered/Not Resolved]
  - Metastatic renal cell carcinoma [Fatal]
  - Decreased appetite [Not Recovered/Not Resolved]
  - Renal failure [Unknown]
  - Bone pain [Not Recovered/Not Resolved]
  - Depression [Not Recovered/Not Resolved]
  - Gastrooesophageal reflux disease [Not Recovered/Not Resolved]
  - Hyperlipidaemia [Not Recovered/Not Resolved]
  - Hypertension [Not Recovered/Not Resolved]
  - Asthenia [Not Recovered/Not Resolved]
  - Arthropathy [Not Recovered/Not Resolved]
  - Dehydration [Unknown]
  - Plasma cell myeloma [Fatal]
  - Hypocalcaemia [Not Recovered/Not Resolved]
  - Sinusitis [Not Recovered/Not Resolved]

NARRATIVE: CASE EVENT DATE: 20140331
